FAERS Safety Report 23777770 (Version 4)
Quarter: 2024Q2

REPORT INFORMATION
  Report Type: Spontaneous
  Country: US (occurrence: US)
  Receive Date: 20240424
  Receipt Date: 20240520
  Transmission Date: 20240716
  Serious: No
  Sender: FDA-Public Use
  Company Number: US-PFIZER INC-202400084930

PATIENT
  Age: 9 Year
  Sex: Female
  Weight: 24.95 kg

DRUGS (3)
  1. GENOTROPIN [Suspect]
     Active Substance: SOMATROPIN
     Dosage: 0.7 MG DAILY
     Dates: start: 20240403
  2. GUANFACINE [Concomitant]
     Active Substance: GUANFACINE
     Indication: Blood pressure abnormal
     Dosage: UNK
  3. GUANFACINE [Concomitant]
     Active Substance: GUANFACINE
     Indication: Fatigue

REACTIONS (4)
  - Incorrect dose administered by device [Unknown]
  - Poor quality device used [Unknown]
  - Device breakage [Unknown]
  - Device leakage [Unknown]
